FAERS Safety Report 15619713 (Version 12)
Quarter: 2022Q3

REPORT INFORMATION
  Report Type: Other
  Country: DE (occurrence: None)
  Receive Date: 20181115
  Receipt Date: 20220908
  Transmission Date: 20221026
  Serious: Yes (Hospitalization, Other)
  Sender: FDA-Public Use
  Company Number: DE-ROCHE-2126742

PATIENT
  Age: 24 Year
  Sex: Female
  Weight: 60 kg

DRUGS (12)
  1. OCREVUS [Suspect]
     Active Substance: OCRELIZUMAB
     Indication: Relapsing-remitting multiple sclerosis
     Dosage: SHE RECEIVED THE SECOND INFUSION OF OCRELIZUMAB ON 24/OCT/2018.
     Route: 042
     Dates: start: 20180417, end: 20180417
  2. OCREVUS [Suspect]
     Active Substance: OCRELIZUMAB
     Route: 042
     Dates: start: 20181024
  3. OCREVUS [Suspect]
     Active Substance: OCRELIZUMAB
     Route: 042
     Dates: start: 20190502
  4. OCREVUS [Suspect]
     Active Substance: OCRELIZUMAB
     Dosage: HALF THE DOSE
     Route: 042
     Dates: start: 20191105, end: 20191105
  5. OCREVUS [Suspect]
     Active Substance: OCRELIZUMAB
     Route: 042
     Dates: start: 20210712
  6. OCREVUS [Suspect]
     Active Substance: OCRELIZUMAB
     Route: 042
     Dates: start: 20210726
  7. COMIRNATY [Suspect]
     Active Substance: TOZINAMERAN
     Indication: COVID-19 prophylaxis
     Dosage: SECOND DOSE ON 18/MAY/2021
     Route: 065
     Dates: start: 20210427
  8. GABAPENTIN [Concomitant]
     Active Substance: GABAPENTIN
     Dates: start: 201802, end: 201802
  9. PREGABALIN [Concomitant]
     Active Substance: PREGABALIN
     Dosage: 0-0-1
  10. BACLOFEN [Concomitant]
     Active Substance: BACLOFEN
  11. BACLOFEN [Concomitant]
     Active Substance: BACLOFEN
  12. BENSERAZIDE\LEVODOPA [Concomitant]
     Active Substance: BENSERAZIDE\LEVODOPA
     Dosage: 100 MG / 25 MG

REACTIONS (38)
  - Paraesthesia [Recovered/Resolved]
  - Hypoaesthesia [Recovered/Resolved]
  - Pain [Recovering/Resolving]
  - Uhthoff^s phenomenon [Recovered/Resolved]
  - Seizure [Recovering/Resolving]
  - Acquired immunodeficiency syndrome [Not Recovered/Not Resolved]
  - Multiple sclerosis relapse [Recovered/Resolved]
  - Neoplasm [Not Recovered/Not Resolved]
  - Incorrect dose administered [Unknown]
  - Cardiovascular disorder [Recovered/Resolved]
  - Nasopharyngitis [Recovered/Resolved]
  - Limb crushing injury [Unknown]
  - Nail bed inflammation [Recovered/Resolved]
  - Impaired healing [Recovered/Resolved]
  - Nail growth abnormal [Not Recovered/Not Resolved]
  - Nail discolouration [Unknown]
  - Peripheral swelling [Unknown]
  - Immunoglobulins decreased [Recovering/Resolving]
  - Muscle spasticity [Recovering/Resolving]
  - Chondropathy [Recovering/Resolving]
  - Off label use [Unknown]
  - Monocyte count abnormal [Recovered/Resolved]
  - B-lymphocyte count decreased [Recovered/Resolved]
  - Upper respiratory tract infection [Recovered/Resolved]
  - Weight decreased [Recovering/Resolving]
  - Pyrexia [Recovered/Resolved]
  - Chills [Recovered/Resolved]
  - Vitamin D deficiency [Unknown]
  - Raynaud^s phenomenon [Unknown]
  - Restless legs syndrome [Unknown]
  - C-reactive protein increased [Unknown]
  - Cartilage injury [Unknown]
  - Nasal discomfort [Unknown]
  - Blood immunoglobulin A decreased [Not Recovered/Not Resolved]
  - Pain in extremity [Recovering/Resolving]
  - COVID-19 [Unknown]
  - Musculoskeletal chest pain [Unknown]
  - Chest X-ray abnormal [Unknown]

NARRATIVE: CASE EVENT DATE: 20180601
